FAERS Safety Report 5637522-1 (Version None)
Quarter: 2008Q1

REPORT INFORMATION
  Report Type: 
  Country: None (occurrence: None)
  Receive Date: 20080225
  Receipt Date: 20080213
  Transmission Date: 20080703
  Serious: Yes (Hospitalization, Other)
  Sender: FDA-Public Use
  Company Number: US-PFIZER INC-2008014906

PATIENT
  Sex: Female
  Weight: 108.9 kg

DRUGS (20)
  1. DILANTIN [Suspect]
     Indication: CONVULSION
     Route: 048
  2. NEURONTIN [Interacting]
     Indication: NEURALGIA
     Dates: start: 20040101, end: 20050101
  3. PHENYTOIN [Interacting]
     Indication: CONVULSION
     Route: 048
  4. LYRICA [Suspect]
     Indication: NEURALGIA
  5. GEMFIBROZIL [Concomitant]
  6. OMEPRAZOLE [Concomitant]
  7. BACTRIM [Concomitant]
  8. METOPROLOL TARTRATE [Concomitant]
  9. DICLOFENAC SODIUM [Concomitant]
  10. KLOR-CON [Concomitant]
  11. LASIX [Concomitant]
  12. BACLOFEN [Concomitant]
  13. ASPIRIN [Concomitant]
  14. LEVOXYL [Concomitant]
  15. OXYBUTYNIN CHLORIDE [Concomitant]
  16. ASCORBIC ACID [Concomitant]
  17. VITAMIN E [Concomitant]
  18. VITAMIN B COMPLEX CAP [Concomitant]
  19. CALCIUM WITH VITAMIN D [Concomitant]
  20. TYLENOL (CAPLET) [Concomitant]

REACTIONS (4)
  - ABASIA [None]
  - CONVULSION [None]
  - DRUG INTERACTION [None]
  - POLYNEUROPATHY [None]
